FAERS Safety Report 21670129 (Version 4)
Quarter: 2022Q4

REPORT INFORMATION
  Report Type: Report from Study
  Country: ES (occurrence: ES)
  Receive Date: 20221201
  Receipt Date: 20221227
  Transmission Date: 20230112
  Serious: Yes (Death, Hospitalization)
  Sender: FDA-Public Use
  Company Number: ES-GILEAD-2022-0604280

PATIENT
  Sex: Male

DRUGS (4)
  1. SACITUZUMAB GOVITECAN [Suspect]
     Active Substance: SACITUZUMAB GOVITECAN
     Indication: Non-small cell lung cancer
     Dosage: 670 MG
     Route: 042
     Dates: start: 20221027, end: 20221027
  2. SACITUZUMAB GOVITECAN [Suspect]
     Active Substance: SACITUZUMAB GOVITECAN
     Dosage: 670 MG
     Route: 042
     Dates: start: 20221103, end: 20221103
  3. PEMBROLIZUMAB [Suspect]
     Active Substance: PEMBROLIZUMAB
     Indication: Non-small cell lung cancer
     Dosage: 200 MG
     Route: 042
     Dates: start: 20221027, end: 20221027
  4. CARBOPLATIN [Suspect]
     Active Substance: CARBOPLATIN
     Indication: Non-small cell lung cancer
     Dosage: 380 MG
     Route: 042
     Dates: start: 20221027, end: 20221027

REACTIONS (4)
  - Pneumonia [Fatal]
  - Mucosal inflammation [Not Recovered/Not Resolved]
  - Diarrhoea [Not Recovered/Not Resolved]
  - Febrile neutropenia [Recovered/Resolved]

NARRATIVE: CASE EVENT DATE: 20221107
